FAERS Safety Report 12221161 (Version 1)
Quarter: 2016Q1

REPORT INFORMATION
  Report Type: Spontaneous
  Country: US (occurrence: None)
  Receive Date: 20160329
  Receipt Date: 20160329
  Transmission Date: 20160526
  Serious: Yes (Life-Threatening, Hospitalization, Disabling, Other)
  Sender: FDA-Public Use
  Company Number: None

PATIENT
  Age: 47 Year
  Sex: Male
  Weight: 97.52 kg

DRUGS (8)
  1. ZISPARZIDONE [Concomitant]
  2. FISH OIL [Concomitant]
     Active Substance: FISH OIL
  3. FLAX OIL [Concomitant]
  4. LARIAM [Suspect]
     Active Substance: MEFLOQUINE HYDROCHLORIDE
     Indication: MALARIA PROPHYLAXIS
     Route: 048
     Dates: start: 19910709, end: 19920131
  5. LAMOTRIGINE. [Concomitant]
     Active Substance: LAMOTRIGINE
  6. MULTI VITAMIN [Concomitant]
     Active Substance: VITAMINS
  7. SIMVASTATIN. [Concomitant]
     Active Substance: SIMVASTATIN
  8. VITAMIN D [Concomitant]
     Active Substance: CHOLECALCIFEROL

REACTIONS (8)
  - Psychotic disorder [None]
  - Mania [None]
  - Suicidal ideation [None]
  - Insomnia [None]
  - Depression [None]
  - Schizoaffective disorder [None]
  - Mental disorder [None]
  - Abnormal dreams [None]

NARRATIVE: CASE EVENT DATE: 19920121
